FAERS Safety Report 11326028 (Version 1)
Quarter: 2015Q3

REPORT INFORMATION
  Report Type: Spontaneous
  Country: US (occurrence: US)
  Receive Date: 20150731
  Receipt Date: 20150731
  Transmission Date: 20151125
  Serious: No
  Sender: FDA-Public Use
  Company Number: US-009507513-1507USA014131

PATIENT
  Age: 52 Year
  Sex: Female

DRUGS (7)
  1. ESCITALOPRAM [Concomitant]
     Active Substance: ESCITALOPRAM OXALATE
     Indication: ANXIETY
     Dosage: 10 MG DAILY
  2. LORAZEPAM. [Concomitant]
     Active Substance: LORAZEPAM
     Indication: DEPRESSION
     Dosage: 1 MG, BID
  3. REBETOL [Suspect]
     Active Substance: RIBAVIRIN
     Dosage: 600MG DAILY
     Route: 048
  4. PEGINTRON [Suspect]
     Active Substance: PEGINTERFERON ALFA-2B
     Indication: HEPATITIS C VIRUS TEST POSITIVE
     Dosage: 180 MICROGRAM WEEKLY
  5. PEGINTRON [Suspect]
     Active Substance: PEGINTERFERON ALFA-2B
     Dosage: 90 MICROGRAM, WEEKLY
  6. TELAPREVIR [Suspect]
     Active Substance: TELAPREVIR
     Indication: HEPATITIS C VIRUS TEST POSITIVE
     Dosage: 750 MG, TID
  7. REBETOL [Suspect]
     Active Substance: RIBAVIRIN
     Indication: HEPATITIS C VIRUS TEST POSITIVE
     Dosage: 1000MG DAILY
     Route: 048

REACTIONS (2)
  - Retinopathy [Recovered/Resolved]
  - Anaemia [Unknown]
